FAERS Safety Report 6416507-1 (Version None)
Quarter: 2009Q4

REPORT INFORMATION
  Report Type: 
  Country: None (occurrence: None)
  Receive Date: 20091027
  Receipt Date: 20091014
  Transmission Date: 20100525
  Serious: Yes (Hospitalization)
  Sender: FDA-Public Use
  Company Number: PHHY2009DE44276

PATIENT
  Sex: Female
  Weight: 51 kg

DRUGS (2)
  1. EXJADE [Suspect]
     Indication: MYELODYSPLASTIC SYNDROME
     Dosage: 1000 MG/DAY
     Route: 048
     Dates: start: 20090609, end: 20090619
  2. EXJADE [Suspect]
     Indication: HAEMOSIDEROSIS
     Dosage: 1000 MG/DAY
     Route: 048
     Dates: start: 20090722

REACTIONS (4)
  - CHILLS [None]
  - NAUSEA [None]
  - PRURITUS [None]
  - PYREXIA [None]
